FAERS Safety Report 9495864 (Version 3)
Quarter: 2013Q3

REPORT INFORMATION
  Report Type: Spontaneous
  Country: AR (occurrence: AR)
  Receive Date: 20130903
  Receipt Date: 20130920
  Transmission Date: 20140515
  Serious: Yes (Death)
  Sender: FDA-Public Use
  Company Number: AR-ASTRAZENECA-2013SE66278

PATIENT
  Age: 193 Day
  Sex: Male
  Weight: 4 kg

DRUGS (9)
  1. SYNAGIS [Suspect]
     Indication: HEART DISEASE CONGENITAL
     Route: 030
     Dates: start: 20130619, end: 20130723
  2. SYNAGIS [Suspect]
     Indication: PULMONARY HYPERTENSION
     Route: 030
     Dates: start: 20130619, end: 20130723
  3. ENALAPRIL [Concomitant]
     Route: 048
  4. ESPIRONOLACTONE [Concomitant]
     Route: 048
  5. FUROSEMIDE [Concomitant]
     Route: 048
  6. DOMPERIDONE [Concomitant]
     Route: 048
  7. RANITIDINE [Concomitant]
     Route: 048
  8. SALBUTAMOL [Concomitant]
     Dosage: 2 PUFF (1 PUFF, 6 HR)
     Route: 055
  9. FLUTICASONE [Concomitant]
     Dosage: 2 PUFF (1 PUFF, 1 IN 12 HR)
     Route: 055

REACTIONS (3)
  - Pulmonary haemorrhage [Fatal]
  - Cardio-respiratory arrest [Fatal]
  - Respiratory distress [Fatal]
